FAERS Safety Report 11208991 (Version 1)
Quarter: 2015Q2

REPORT INFORMATION
  Report Type: Report from Study
  Country: TR (occurrence: TR)
  Receive Date: 20150622
  Receipt Date: 20150622
  Transmission Date: 20150821
  Serious: Yes (Other)
  Sender: FDA-Public Use
  Company Number: TR-PFIZER INC-2015201007

PATIENT
  Age: 13 Year
  Sex: Male

DRUGS (1)
  1. IBUPROFEN. [Suspect]
     Active Substance: IBUPROFEN
     Dosage: UNK

REACTIONS (6)
  - Angioedema [Unknown]
  - Dyspnoea [Unknown]
  - Rhinorrhoea [Unknown]
  - Cough [Unknown]
  - Forced expiratory volume decreased [Unknown]
  - Wheezing [Unknown]
